FAERS Safety Report 10680071 (Version 6)
Quarter: 2015Q3

REPORT INFORMATION
  Report Type: Report from Study
  Country: FR (occurrence: FR)
  Receive Date: 20141229
  Receipt Date: 20150716
  Transmission Date: 20151125
  Serious: Yes (Other)
  Sender: FDA-Public Use
  Company Number: FR-GSKJP-FR2014GSK039984AA

PATIENT
  Age: 84 Year
  Sex: Female
  Weight: 58 kg

DRUGS (5)
  1. PAZOPANIB [Suspect]
     Active Substance: PAZOPANIB
     Indication: SALIVARY GLAND CANCER
     Dosage: 800 MG, CYC
     Route: 048
     Dates: start: 20140813, end: 20140908
  2. TRIATEC [Concomitant]
     Active Substance: RAMIPRIL
     Indication: HYPERTENSION
     Dosage: UNK
     Dates: start: 20140822
  3. MEDIATENSYL [Concomitant]
     Active Substance: URAPIDIL
     Indication: HYPERTENSION
     Dosage: UNK
     Route: 048
     Dates: start: 20140904
  4. LEXOMIL [Concomitant]
     Active Substance: BROMAZEPAM
     Indication: DEPRESSION
     Dosage: UNK
     Route: 048
     Dates: start: 20140811
  5. EFFERALGAN [Concomitant]
     Active Substance: ACETAMINOPHEN
     Indication: HEADACHE
     Dosage: UNK
     Dates: start: 20140821

REACTIONS (1)
  - Renal failure [Not Recovered/Not Resolved]

NARRATIVE: CASE EVENT DATE: 20140908
